FAERS Safety Report 24328527 (Version 2)
Quarter: 2024Q4

REPORT INFORMATION
  Report Type: Spontaneous
  Country: US (occurrence: US)
  Receive Date: 20240917
  Receipt Date: 20241028
  Transmission Date: 20250114
  Serious: Yes (Other)
  Sender: SANOFI AVENTIS
  Company Number: US-SA-2024SA266001

PATIENT
  Age: 42 Year
  Sex: Female

DRUGS (2)
  1. DUPIXENT [Suspect]
     Active Substance: DUPILUMAB
     Dosage: 300 MG, QW
     Route: 058
     Dates: start: 20240816, end: 2024
  2. XOLAIR [Concomitant]
     Active Substance: OMALIZUMAB

REACTIONS (12)
  - Epstein-Barr virus infection [Unknown]
  - Condition aggravated [Unknown]
  - Pneumonia [Unknown]
  - Decreased immune responsiveness [Unknown]
  - Drug intolerance [Unknown]
  - Infectious mononucleosis [Unknown]
  - Exposure to SARS-CoV-2 [Unknown]
  - Bronchitis [Unknown]
  - Asthenia [Unknown]
  - Cough [Unknown]
  - Decreased appetite [Unknown]
  - Insomnia [Unknown]

NARRATIVE: CASE EVENT DATE: 20240101
